FAERS Safety Report 10146358 (Version 1)
Quarter: 2014Q2

REPORT INFORMATION
  Report Type: Spontaneous
  Country: CL (occurrence: CL)
  Receive Date: 20140501
  Receipt Date: 20140501
  Transmission Date: 20141212
  Serious: Yes (Other)
  Sender: FDA-Public Use
  Company Number: CL-ROXANE LABORATORIES, INC.-2014-RO-00676RO

PATIENT
  Age: 13 Year
  Sex: Male

DRUGS (3)
  1. PREDNISONE [Suspect]
     Indication: ACUTE LYMPHOCYTIC LEUKAEMIA
     Route: 065
  2. L-ASPARAGINASE [Suspect]
     Indication: ACUTE LYMPHOCYTIC LEUKAEMIA
     Route: 042
  3. FUROSEMIDE [Concomitant]
     Route: 065

REACTIONS (2)
  - Hyperglycaemia [Recovered/Resolved]
  - Metabolic acidosis [Unknown]
